FAERS Safety Report 4918712-X (Version None)
Quarter: 2006Q1

REPORT INFORMATION
  Report Type: 
  Country: None (occurrence: None)
  Receive Date: 20060221
  Receipt Date: 20060221
  Transmission Date: 20060701
  Serious: Yes (Other)
  Sender: FDA-Public Use
  Company Number: None

PATIENT
  Age: 56 Year
  Sex: Male
  Weight: 82.1011 kg

DRUGS (2)
  1. ENBREL [Suspect]
     Indication: RHEUMATOID ARTHRITIS
     Dosage: 25MG   2 X A WEEK   SQ
     Route: 058
     Dates: start: 19981013, end: 20060222
  2. METHOTREXATE [Concomitant]

REACTIONS (1)
  - BRONCHIOLOALVEOLAR CARCINOMA [None]
